FAERS Safety Report 13784332 (Version 1)
Quarter: 2017Q3

REPORT INFORMATION
  Report Type: Spontaneous
  Country: IE (occurrence: IE)
  Receive Date: 20170724
  Receipt Date: 20170724
  Transmission Date: 20171127
  Serious: Yes (Life-Threatening, Hospitalization)
  Sender: FDA-Public Use
  Company Number: PHHY2017IE106039

PATIENT
  Age: 76 Year
  Sex: Female

DRUGS (2)
  1. DICLAC [Suspect]
     Active Substance: DICLOFENAC
     Indication: CHOLELITHIASIS
  2. DICLAC [Suspect]
     Active Substance: DICLOFENAC
     Indication: ANALGESIC THERAPY
     Dosage: 100 MG, UNK
     Route: 054
     Dates: start: 20170612

REACTIONS (5)
  - Hypotension [Recovered/Resolved]
  - Flushing [Recovered/Resolved]
  - Cardiac arrest [Recovered/Resolved]
  - Hypoaesthesia [Recovered/Resolved]
  - Loss of consciousness [Recovered/Resolved]

NARRATIVE: CASE EVENT DATE: 20170612
